FAERS Safety Report 10520373 (Version 2)
Quarter: 2014Q4

REPORT INFORMATION
  Report Type: Report from Study
  Country: US (occurrence: US)
  Receive Date: 20141015
  Receipt Date: 20141015
  Transmission Date: 20150528
  Serious: Yes (Hospitalization)
  Sender: FDA-Public Use
  Company Number: US-GLAXOSMITHKLINE-A1089079A

PATIENT
  Age: 62 Year
  Sex: Female
  Weight: 80.1 kg

DRUGS (2)
  1. LAPATINIB TOSILATE TABLET [Suspect]
     Active Substance: LAPATINIB DITOSYLATE
     Indication: NEOPLASM
     Dosage: 1250 MG, QD
     Route: 048
     Dates: start: 20140904
  2. PEMETREXED [Suspect]
     Active Substance: PEMETREXED
     Indication: NEOPLASM
     Dosage: 950 MG, QD
     Route: 048
     Dates: start: 20140904

REACTIONS (1)
  - Nausea [Recovered/Resolved]

NARRATIVE: CASE EVENT DATE: 20140911
